FAERS Safety Report 6573805-9 (Version None)
Quarter: 2010Q1

REPORT INFORMATION
  Report Type: 
  Country: None (occurrence: None)
  Receive Date: 20100204
  Receipt Date: 20100204
  Transmission Date: 20100710
  Serious: Yes (Life-Threatening, Hospitalization, Disabling)
  Sender: FDA-Public Use
  Company Number: None

PATIENT
  Age: 64 Year
  Sex: Female
  Weight: 72.5755 kg

DRUGS (1)
  1. HALFLYTELY [Suspect]
     Indication: COLONOSCOPY

REACTIONS (6)
  - CLOSTRIDIUM DIFFICILE COLITIS [None]
  - CONTRAINDICATION TO MEDICAL TREATMENT [None]
  - DIARRHOEA [None]
  - LEUKAEMIA [None]
  - MALAISE [None]
  - VOMITING [None]
